FAERS Safety Report 11465799 (Version 1)
Quarter: 2015Q3

REPORT INFORMATION
  Report Type: Spontaneous
  Country: US (occurrence: US)
  Receive Date: 20150907
  Receipt Date: 20150907
  Transmission Date: 20151125
  Serious: Yes (Other)
  Sender: FDA-Public Use
  Company Number: US-TAKEDA-2014TUS010611

PATIENT

DRUGS (8)
  1. STARLIX [Concomitant]
     Active Substance: NATEGLINIDE
     Dosage: 360 MG, UNK
     Dates: start: 2001
  2. GLUCOTROL [Concomitant]
     Active Substance: GLIPIZIDE
     Dosage: 5 MG, UNK
     Dates: start: 2001
  3. ACTOS [Suspect]
     Active Substance: PIOGLITAZONE HYDROCHLORIDE
     Indication: TYPE 2 DIABETES MELLITUS
     Dosage: 30 MG, UNK
     Route: 048
     Dates: start: 200901, end: 201104
  4. AVANDIA [Concomitant]
     Active Substance: ROSIGLITAZONE MALEATE
     Dosage: UNK
     Dates: start: 2000, end: 2008
  5. GLUCOPHAGE [Concomitant]
     Active Substance: METFORMIN HYDROCHLORIDE
     Dosage: UNK
     Dates: start: 1990, end: 2001
  6. DIABETA                            /00145301/ [Concomitant]
     Dosage: UNK
     Dates: start: 1975, end: 1990
  7. MICRONASE [Concomitant]
     Active Substance: GLYBURIDE
     Dosage: UNK
     Dates: start: 1975, end: 1990
  8. LANTUS [Concomitant]
     Active Substance: INSULIN GLARGINE
     Dosage: 18 IU, UNK
     Dates: start: 2001

REACTIONS (1)
  - Bladder cancer [Unknown]

NARRATIVE: CASE EVENT DATE: 201001
